FAERS Safety Report 4367603-4 (Version None)
Quarter: 2004Q2

REPORT INFORMATION
  Report Type: 
  Country: None (occurrence: None)
  Receive Date: 20040601
  Receipt Date: 20030407
  Transmission Date: 20050107
  Serious: Yes (Hospitalization, Disabling)
  Sender: FDA-Public Use
  Company Number: US-MERCK-0304USA00839

PATIENT
  Age: 53 Year
  Sex: Male

DRUGS (5)
  1. [THERAPY UNSPECIFIED] [Concomitant]
     Route: 065
  2. ALLOPURINOL [Concomitant]
     Route: 065
  3. ADALAT [Concomitant]
     Route: 065
  4. ACCUPRIL [Concomitant]
     Route: 065
  5. VIOXX [Suspect]
     Route: 048

REACTIONS (10)
  - ATRIAL FIBRILLATION [None]
  - DEPRESSION [None]
  - EMBOLIC STROKE [None]
  - GOUT [None]
  - HYPERTENSION [None]
  - HYPERTROPHIC CARDIOMYOPATHY [None]
  - JOINT EFFUSION [None]
  - SLEEP APNOEA SYNDROME [None]
  - URINARY TRACT INFECTION [None]
  - VITAMIN B12 DEFICIENCY [None]
